FAERS Safety Report 18177846 (Version 1)
Quarter: 2020Q3

REPORT INFORMATION
  Report Type: Report from Study
  Country: LU (occurrence: LU)
  Receive Date: 20200820
  Receipt Date: 20200820
  Transmission Date: 20201103
  Serious: Yes (Life-Threatening)
  Sender: FDA-Public Use
  Company Number: NVSC2020LU222902

PATIENT
  Age: 16 Year
  Sex: Female
  Weight: 52 kg

DRUGS (3)
  1. BEVACIZUMAB. [Concomitant]
     Active Substance: BEVACIZUMAB
     Indication: CHEMOTHERAPY
     Dosage: 10 MG/KG
     Route: 065
     Dates: start: 20200208, end: 20200812
  2. BYL719 [Suspect]
     Active Substance: ALPELISIB
     Indication: PIK3CA-ACTIVATED MUTATION
     Dosage: 300 MG (6X5 DF, 300 MF TOO BIG FOR HER)
     Route: 048
     Dates: start: 20200812
  3. BYL719 [Suspect]
     Active Substance: ALPELISIB
     Indication: BREAST CANCER
     Dosage: 300 MG, QD
     Route: 048
     Dates: start: 20200708, end: 20200719

REACTIONS (14)
  - Rash [Recovered/Resolved]
  - Anaphylactic reaction [Recovered/Resolved]
  - Peripheral ischaemia [Recovered/Resolved]
  - Skin toxicity [Recovered/Resolved]
  - Skin lesion [Not Recovered/Not Resolved]
  - White blood cell count increased [Unknown]
  - Malaise [Recovered/Resolved]
  - Tachycardia [Recovered/Resolved]
  - Vomiting [Recovered/Resolved]
  - Pyrexia [Recovered/Resolved]
  - Abdominal pain [Recovered/Resolved]
  - Diarrhoea [Recovered/Resolved]
  - Rash [Recovered/Resolved]
  - Neutrophil count increased [Unknown]

NARRATIVE: CASE EVENT DATE: 20200716
